FAERS Safety Report 5663888-2 (Version None)
Quarter: 2008Q1

REPORT INFORMATION
  Report Type: 
  Country: None (occurrence: None)
  Receive Date: 20080311
  Receipt Date: 20080303
  Transmission Date: 20080703
  Serious: Yes (Life-Threatening, Hospitalization)
  Sender: FDA-Public Use
  Company Number: ADE2008-0137

PATIENT
  Age: 49 Year
  Sex: Female

DRUGS (4)
  1. SERTRALINE HYDROCHLORIDE [Suspect]
  2. RISPERIDONE [Suspect]
  3. PARACETAMOL [Suspect]
     Dosage: 10G X1 PO
     Route: 048
  4. CO-PROXAMOL [Suspect]
     Dosage: 60 TABLETS X 1 PO
     Route: 048

REACTIONS (8)
  - BRAIN OEDEMA [None]
  - CSF GLUCOSE DECREASED [None]
  - GENERAL PHYSICAL HEALTH DETERIORATION [None]
  - HAEMODIALYSIS [None]
  - MULTIPLE DRUG OVERDOSE [None]
  - PULMONARY OEDEMA [None]
  - SOMNOLENCE [None]
  - URINE OUTPUT DECREASED [None]
